FAERS Safety Report 13014702 (Version 1)
Quarter: 2016Q4

REPORT INFORMATION
  Report Type: Spontaneous
  Country: US (occurrence: US)
  Receive Date: 20161209
  Receipt Date: 20161209
  Transmission Date: 20170207
  Serious: Yes (Death, Other)
  Sender: FDA-Public Use
  Company Number: US-ACTELION-A-NJ2016-146446

PATIENT
  Age: 79 Year
  Sex: Male

DRUGS (12)
  1. TRACLEER [Suspect]
     Active Substance: BOSENTAN
     Indication: PULMONARY HYPERTENSION
     Dosage: 62.5 MG, UNK
     Route: 048
     Dates: start: 20161101
  2. WARFARIN [Concomitant]
     Active Substance: WARFARIN
  3. SERTRALINE [Concomitant]
     Active Substance: SERTRALINE HYDROCHLORIDE
  4. CARVEDILOL. [Concomitant]
     Active Substance: CARVEDILOL
  5. ATORVASTATIN [Concomitant]
     Active Substance: ATORVASTATIN
  6. TORSEMIDE. [Concomitant]
     Active Substance: TORSEMIDE
  7. ASPIRIN. [Concomitant]
     Active Substance: ASPIRIN
  8. SPIRONOLACTONE. [Concomitant]
     Active Substance: SPIRONOLACTONE
  9. NASONEX [Concomitant]
     Active Substance: MOMETASONE FUROATE
  10. LANSOPRAZOLE. [Concomitant]
     Active Substance: LANSOPRAZOLE
  11. ALLOPURINOL. [Concomitant]
     Active Substance: ALLOPURINOL
  12. ALFUZOSIN [Concomitant]
     Active Substance: ALFUZOSIN

REACTIONS (2)
  - Respiratory failure [Fatal]
  - Hypoxia [Unknown]
